FAERS Safety Report 8383448-2 (Version None)
Quarter: 2012Q2

REPORT INFORMATION
  Report Type: 
  Country: None (occurrence: None)
  Receive Date: 20120524
  Receipt Date: 20120516
  Transmission Date: 20120825
  Serious: Yes (Other)
  Sender: FDA-Public Use
  Company Number: DE-UCBSA-057048

PATIENT
  Age: 55 Year
  Sex: Male
  Weight: 102 kg

DRUGS (3)
  1. VIMPAT [Suspect]
     Indication: EPILEPSY
     Route: 048
     Dates: start: 20120428, end: 20120511
  2. VIMPAT [Suspect]
     Dosage: SINGLE DOSE:1/2 - 1
     Route: 048
     Dates: start: 20111001, end: 20120428
  3. KEPPRA [Concomitant]
     Indication: EPILEPSY
     Dosage: 1500 MG -0- 2000 MG
     Route: 048
     Dates: start: 20111010

REACTIONS (5)
  - GAIT DISTURBANCE [None]
  - MONOPLEGIA [None]
  - COORDINATION ABNORMAL [None]
  - FALL [None]
  - BALANCE DISORDER [None]
